FAERS Safety Report 9201560 (Version 2)
Quarter: 2013Q2

REPORT INFORMATION
  Report Type: Spontaneous
  Country: US (occurrence: US)
  Receive Date: 20130401
  Receipt Date: 20130522
  Transmission Date: 20140414
  Serious: Yes (Hospitalization, Other)
  Sender: FDA-Public Use
  Company Number: US-PFIZER INC-2013103141

PATIENT
  Age: 73 Year
  Sex: Female
  Weight: 101.59 kg

DRUGS (15)
  1. LIPITOR [Suspect]
     Indication: BLOOD CHOLESTEROL INCREASED
     Dosage: 20 MG, ONCE A DAY
     Route: 048
     Dates: start: 2005
  2. LIPITOR [Suspect]
     Indication: HYPERLIPIDAEMIA
  3. NORVASC [Suspect]
     Indication: HYPERTENSION
     Dosage: 10 MG, ONCE A DAY
     Route: 048
  4. COZAAR [Concomitant]
     Indication: BLOOD PRESSURE
     Dosage: 100 MG, 1X/DAY
     Route: 048
  5. COZAAR [Concomitant]
     Indication: RENAL DISORDER
  6. LOTRISONE [Concomitant]
     Dosage: UNK, 1X/DAILY
  7. NEXIUM [Concomitant]
     Dosage: 40 MG, 1X/DAY
  8. ATENOLOL/CHLORTHALIDONE [Concomitant]
     Dosage: UNK, 50-25 MG
     Route: 048
  9. FLUOXETINE HYDROCHLORIDE [Concomitant]
     Dosage: 20 MG, 1X/DAY
     Route: 048
  10. FUROSEMIDE [Concomitant]
     Dosage: 40 MG, EVERY MORNING
     Route: 048
  11. LEVOTHYROXINE [Concomitant]
     Dosage: 137 UG, 1X/DAY
     Route: 048
  12. METFORMIN HYDROCHLORIDE [Concomitant]
     Dosage: 500 MG, 2X/DAY
     Route: 048
  13. ZINC OXIDE [Concomitant]
     Dosage: UNK, TWICE A DAY AS NEEDED
  14. RIFAMPIN [Concomitant]
     Dosage: 300 MG, 2X/DAY
  15. TEMAZEPAM [Concomitant]
     Dosage: 30 MG, 1 AT BED TIME

REACTIONS (3)
  - Arthropathy [Unknown]
  - Arthritis infective [Recovering/Resolving]
  - Blister [Unknown]
